FAERS Safety Report 8508408-X (Version None)
Quarter: 2012Q2

REPORT INFORMATION
  Report Type: 
  Country: None (occurrence: None)
  Receive Date: 20120405
  Receipt Date: 20081104
  Transmission Date: 20120825
  Serious: Yes (Hospitalization, Disabling)
  Sender: FDA-Public Use
  Company Number: PHEH2008US09916

PATIENT
  Age: 82 Year
  Sex: Female
  Weight: 55.8 kg

DRUGS (4)
  1. DIOVAN [Concomitant]
  2. RECLAST [Suspect]
     Indication: OSTEOPOROSIS POSTMENOPAUSAL
     Dosage: 5 MG, IV ONCE YEARLY, INTRAVENOUS
     Route: 042
     Dates: start: 20081003
  3. COUMADIN [Concomitant]
  4. ATENOLOL [Concomitant]

REACTIONS (3)
  - MUSCULAR WEAKNESS [None]
  - FATIGUE [None]
  - PAIN [None]
